FAERS Safety Report 4305124-5 (Version None)
Quarter: 2004Q1

REPORT INFORMATION
  Report Type: 
  Country: None (occurrence: None)
  Receive Date: 20040225
  Receipt Date: 20040225
  Transmission Date: 20041129
  Serious: Yes (Other)
  Sender: FDA-Public Use
  Company Number: None

PATIENT
  Sex: Male
  Weight: 52.7 kg

DRUGS (16)
  1. NESIRITIDE [Suspect]
     Indication: CARDIAC FAILURE CONGESTIVE
     Dosage: 0.01 MCG/KG/MIN CONT INF
     Route: 042
     Dates: start: 20031007
  2. ACETAMINOPHEN [Concomitant]
  3. ACYCLOVIR [Concomitant]
  4. CHLORTHIAZIDE TAB [Concomitant]
  5. DIGOXIN [Concomitant]
  6. DIPHENHYDRAIMINE [Concomitant]
  7. ENALAPRILATE [Concomitant]
  8. FUROSEMIDE [Concomitant]
  9. GENTAMICIN [Concomitant]
  10. METOPROLOL [Concomitant]
  11. HYDROCORTISONE [Concomitant]
  12. METHYLPREDNISONE [Concomitant]
  13. VANCOMYCIN [Concomitant]
  14. ONDANSETRON HCL [Concomitant]
  15. KCL TAB [Concomitant]
  16. PHYTONADIONE [Concomitant]

REACTIONS (1)
  - BRADYCARDIA [None]
